FAERS Safety Report 8814396 (Version 3)
Quarter: 2013Q1

REPORT INFORMATION
  Report Type: Spontaneous
  Country: US (occurrence: US)
  Receive Date: 20120928
  Receipt Date: 20130212
  Transmission Date: 20140127
  Serious: Yes (Other)
  Sender: FDA-Public Use
  Company Number: PHEH2012US018341

PATIENT
  Sex: Female
  Weight: 189 kg

DRUGS (1)
  1. GLEEVEC [Suspect]
     Indication: GASTRIC CANCER
     Dosage: 300 MG, QD
     Route: 048
     Dates: start: 2003

REACTIONS (5)
  - Fracture [Unknown]
  - Pain in extremity [Recovering/Resolving]
  - Weight bearing difficulty [Recovering/Resolving]
  - Pharyngitis streptococcal [Unknown]
  - Contusion [Unknown]
